FAERS Safety Report 15267979 (Version 1)
Quarter: 2018Q3

REPORT INFORMATION
  Report Type: Spontaneous
  Country: US (occurrence: US)
  Receive Date: 20180725
  Receipt Date: 20180725
  Transmission Date: 20181010
  Serious: Yes (Life-Threatening, Hospitalization)
  Sender: FDA-Public Use
  Company Number: None

PATIENT
  Age: 63 Year
  Sex: Male
  Weight: 106.2 kg

DRUGS (4)
  1. AMLODIPINE [Suspect]
     Active Substance: AMLODIPINE BESYLATE
     Indication: HYPERTENSION
     Route: 048
     Dates: start: 20180621, end: 20180722
  2. METOPROLOL SUCC ER 50 MG [Concomitant]
     Dates: start: 20170728, end: 20180722
  3. IRBESARTAN 300 MG [Concomitant]
     Active Substance: IRBESARTAN
     Dates: start: 20180201, end: 20180506
  4. IRBESARTAN 150 MG [Concomitant]
     Active Substance: IRBESARTAN
     Dates: start: 20170728, end: 20180722

REACTIONS (10)
  - Skin odour abnormal [None]
  - Back pain [None]
  - Odynophagia [None]
  - Pain [None]
  - Oropharyngeal pain [None]
  - Condition aggravated [None]
  - Lip dry [None]
  - Chapped lips [None]
  - Generalised erythema [None]
  - Skin exfoliation [None]

NARRATIVE: CASE EVENT DATE: 20180723
